FAERS Safety Report 24143949 (Version 1)
Quarter: 2024Q3

REPORT INFORMATION
  Report Type: Spontaneous
  Country: NL (occurrence: NL)
  Receive Date: 20240727
  Receipt Date: 20240727
  Transmission Date: 20241017
  Serious: Yes (Life-Threatening)
  Sender: TEVA
  Company Number: None

PATIENT
  Age: 42 Year
  Sex: Male

DRUGS (4)
  1. PREDNISOLONE [Suspect]
     Active Substance: PREDNISOLONE
     Indication: Hypersensitivity
     Route: 065
     Dates: start: 20240516, end: 20240520
  2. ALBUTEROL [Concomitant]
     Active Substance: ALBUTEROL
     Indication: Product used for unknown indication
     Dosage: AEROSOL, 100 ?G/DOSE (MICROGRAMS PER DOSE), SALBUTAMOL AEROSOL 100UG/DO / BRAND NAME NOT SPECIFIED
     Route: 065
  3. CLEMASTINE FUMARATE [Suspect]
     Active Substance: CLEMASTINE FUMARATE
     Indication: Hypersensitivity
     Dosage: CLEMASTINE TABLET 1MG / TAVEGYL TABLET 1MG
     Route: 065
     Dates: start: 20240516, end: 20240520
  4. VALPROATE SODIUM [Concomitant]
     Active Substance: VALPROATE SODIUM
     Indication: Product used for unknown indication
     Dosage: VALPROIC ACID TABLET MGA 500MG (ACID+NA-SALT) / DEPAKINE CHRONO TABLET MGA 500MG
     Route: 065

REACTIONS (1)
  - Epilepsy [Recovering/Resolving]
